FAERS Safety Report 4343529-7 (Version None)
Quarter: 2004Q2

REPORT INFORMATION
  Report Type: 
  Country: None (occurrence: None)
  Receive Date: 20040422
  Receipt Date: 20040413
  Transmission Date: 20050107
  Serious: Yes (Hospitalization)
  Sender: FDA-Public Use
  Company Number: PHRM2004FR01518

PATIENT
  Age: 56 Year
  Sex: Female

DRUGS (2)
  1. GLEEVEC [Suspect]
     Indication: CHRONIC MYELOID LEUKAEMIA
     Route: 065
     Dates: start: 20011001
  2. ROFERON-A [Suspect]
     Indication: CHRONIC MYELOID LEUKAEMIA

REACTIONS (3)
  - BORDERLINE OVARIAN TUMOUR [None]
  - OVARIAN ADENOMA [None]
  - PSEUDOMYXOMA PERITONEI [None]
